FAERS Safety Report 4865745-8 (Version None)
Quarter: 2005Q4

REPORT INFORMATION
  Report Type: 
  Country: None (occurrence: None)
  Receive Date: 20051220
  Receipt Date: 20051212
  Transmission Date: 20060501
  Serious: Yes (Hospitalization)
  Sender: FDA-Public Use
  Company Number: 13057

PATIENT
  Age: 68 Year
  Sex: Female
  Weight: 73.8 kg

DRUGS (6)
  1. CARBOPLATIN [Suspect]
     Indication: OVARIAN CANCER
     Dosage: 500 MG IV
     Route: 042
     Dates: start: 20051121, end: 20051121
  2. CARBOPLATIN [Suspect]
     Indication: RECURRENT CANCER
     Dosage: 500 MG IV
     Route: 042
     Dates: start: 20051121, end: 20051121
  3. TAXOL [Concomitant]
  4. ANZEMET [Concomitant]
  5. DEXAMETHASONE [Concomitant]
  6. RANITIDINE [Concomitant]

REACTIONS (2)
  - HYPERSENSITIVITY [None]
  - TROPONIN I INCREASED [None]
